FAERS Safety Report 10057449 (Version 2)
Quarter: 2014Q2

REPORT INFORMATION
  Report Type: Spontaneous
  Country: AU (occurrence: AU)
  Receive Date: 20140403
  Receipt Date: 20140502
  Transmission Date: 20141212
  Serious: Yes (Other)
  Sender: FDA-Public Use
  Company Number: AU-GILEAD-2014-0098185

PATIENT
  Age: 46 Year
  Sex: Male
  Weight: 56.6 kg

DRUGS (5)
  1. HEPSERA [Suspect]
     Indication: PRODUCT USED FOR UNKNOWN INDICATION
     Dosage: 20 MG, UNK
     Route: 065
  2. HEPSERA [Suspect]
     Dosage: 10 UNK, UNK
     Route: 048
     Dates: end: 20140219
  3. TENOFOVIR DISOPROXIL FUMARATE [Suspect]
     Indication: PRODUCT USED FOR UNKNOWN INDICATION
     Dosage: UNK UNK, QOD
     Route: 048
     Dates: start: 20140319
  4. TENOFOVIR DISOPROXIL FUMARATE [Suspect]
     Dosage: 300 MG, QD
     Route: 048
     Dates: start: 20140219, end: 20140319
  5. LAMIVUDINE [Concomitant]
     Dosage: 100 MG, UNK
     Route: 048

REACTIONS (7)
  - Osteoporosis [Not Recovered/Not Resolved]
  - Glomerular filtration rate decreased [Unknown]
  - Drug ineffective [Unknown]
  - Renal impairment [Unknown]
  - Blood phosphorus decreased [Unknown]
  - Renal impairment [Unknown]
  - Renal impairment [Recovering/Resolving]
